FAERS Safety Report 25890562 (Version 2)
Quarter: 2025Q4

REPORT INFORMATION
  Report Type: Spontaneous
  Country: US (occurrence: US)
  Receive Date: 20251007
  Receipt Date: 20251020
  Transmission Date: 20260118
  Serious: No
  Sender: BAYER HEALTHCARE PHARMACEUTICALS INC.
  Company Number: US-BAYER-2025A130797

PATIENT

DRUGS (1)
  1. ESTRADIOL [Suspect]
     Active Substance: ESTRADIOL
     Route: 062

REACTIONS (4)
  - Wrong technique in device usage process [None]
  - Blood pressure decreased [None]
  - Blood bilirubin increased [None]
  - Blood cholesterol decreased [None]
